FAERS Safety Report 8561070-2 (Version None)
Quarter: 2012Q3

REPORT INFORMATION
  Report Type: 
  Country: None (occurrence: None)
  Receive Date: 20120802
  Receipt Date: 20120209
  Transmission Date: 20120928
  Serious: No
  Sender: FDA-Public Use
  Company Number: US-BRISTOL-MYERS SQUIBB COMPANY-16394819

PATIENT
  Age: 51 Year
  Sex: Male

DRUGS (2)
  1. EPZICOM [Suspect]
     Dates: start: 20040101
  2. REYATAZ [Suspect]
     Dosage: 1DF:300MG/100
     Dates: start: 20040101

REACTIONS (1)
  - STAPHYLOCOCCAL INFECTION [None]
